FAERS Safety Report 7076615-1 (Version None)
Quarter: 2010Q4

REPORT INFORMATION
  Report Type: 
  Country: None (occurrence: None)
  Receive Date: 20101029
  Receipt Date: 20101029
  Transmission Date: 20110411
  Serious: No
  Sender: FDA-Public Use
  Company Number: None

PATIENT
  Sex: Male
  Weight: 98.8842 kg

DRUGS (2)
  1. DIAZEPAM [Suspect]
     Indication: CERVICAL SPINAL STENOSIS
     Dosage: 10MG ; 1 TAB Q8? PO PRN
     Route: 048
     Dates: start: 20030101
  2. OXYCODONE AND ACETAMINOPHEN [Suspect]
     Indication: INTERVERTEBRAL DISC PROTRUSION
     Dosage: 10/65  1-2 Q6? PO PRN
     Route: 048
     Dates: start: 20030101

REACTIONS (2)
  - DRUG INEFFECTIVE [None]
  - PRODUCT SUBSTITUTION ISSUE [None]
